FAERS Safety Report 13009048 (Version 1)
Quarter: 2016Q4

REPORT INFORMATION
  Report Type: Spontaneous
  Country: US (occurrence: US)
  Receive Date: 20161208
  Receipt Date: 20161208
  Transmission Date: 20170207
  Serious: Yes (Other)
  Sender: FDA-Public Use
  Company Number: US-PFIZER INC-2016557308

PATIENT
  Age: 52 Year
  Sex: Male

DRUGS (9)
  1. ARAVA [Concomitant]
     Active Substance: LEFLUNOMIDE
  2. LISINOPRIL. [Concomitant]
     Active Substance: LISINOPRIL
  3. LATANOPROST. [Concomitant]
     Active Substance: LATANOPROST
  4. XELJANZ [Suspect]
     Active Substance: TOFACITINIB CITRATE
     Indication: RHEUMATOID ARTHRITIS
     Dosage: 5 MG, 2X/DAY
     Route: 048
     Dates: start: 20161019
  5. PREDNISONE. [Concomitant]
     Active Substance: PREDNISONE
  6. TRIAMCINOLONE [Concomitant]
     Active Substance: TRIAMCINOLONE
  7. METOPROLOL. [Concomitant]
     Active Substance: METOPROLOL
  8. ALEVE [Concomitant]
     Active Substance: NAPROXEN SODIUM
  9. CICLOPIROX. [Concomitant]
     Active Substance: CICLOPIROX

REACTIONS (3)
  - Disease recurrence [Unknown]
  - Hiatus hernia [Unknown]
  - Osteomyelitis [Unknown]

NARRATIVE: CASE EVENT DATE: 2016
